FAERS Safety Report 9110464 (Version 1)
Quarter: 2013Q1

REPORT INFORMATION
  Report Type: Spontaneous
  Country: US (occurrence: US)
  Receive Date: 20130219
  Receipt Date: 20130219
  Transmission Date: 20140127
  Serious: Yes (Life-Threatening, Hospitalization)
  Sender: FDA-Public Use
  Company Number: US-BRACCO-008690

PATIENT
  Age: 58 Year
  Sex: Female
  Weight: 98 kg

DRUGS (20)
  1. MULTIVITAMIN [Concomitant]
     Route: 048
  2. CATAPRES [Concomitant]
     Dosage: ONCE A DAY FOR BP OVER 180
     Route: 048
  3. NITRO-DUR [Concomitant]
     Dosage: 1 PATCH DAILY: REMOVED PATCH DAILY AFTER 12 TO 14 HOURS
     Route: 062
  4. ISOVUE 300 [Suspect]
     Indication: POSITRON EMISSION TOMOGRAM
     Dosage: 2A67512 EXP. 31-JAN-2015, AC2P561A EXP. 31-MAY-2015
     Route: 042
     Dates: start: 20121003, end: 20121003
  5. ISOVUE 300 [Suspect]
     Indication: HEPATIC LESION
     Dosage: 2A67512 EXP. 31-JAN-2015, AC2P561A EXP. 31-MAY-2015
     Route: 042
     Dates: start: 20121003, end: 20121003
  6. TOPAMAX [Concomitant]
     Route: 048
  7. CYANOCOBALAMIN [Concomitant]
     Route: 058
  8. K-DUR [Concomitant]
     Dosage: 1/2 TABLET ALTERNATING WITH 1 TABLET
     Route: 048
  9. NITROSTAT [Concomitant]
     Dosage: 1 TAB SUBLINGUALLY EVERY 5 MINUTES AS NEEDED FOR 3 DOSES OVER 15 MINUTES
     Route: 060
  10. DEMADEX [Concomitant]
     Dosage: 80 EVERY OTHER DAY AND ALTERNATE WITH 40 MG EVERY OTHER DAY
     Route: 048
  11. B COMPLEX B12 [Concomitant]
     Route: 048
  12. XANAX [Concomitant]
     Dosage: 1 MG PO EVERY NIGHT
     Route: 048
  13. LYRICA [Concomitant]
     Route: 048
  14. MOBIC [Concomitant]
     Dosage: AS NEEDED
  15. NEURONTIN [Concomitant]
     Dosage: ONE TAB EVERY MORNING, EVERY 2 PM AND 2 TABLETS EVERY BEDTIME
     Route: 048
  16. CYMBALTA [Concomitant]
     Route: 048
  17. TENORMIN [Concomitant]
     Dosage: 1/2 TAB PO DAILY
     Route: 048
  18. B COMPLEX [Concomitant]
     Route: 048
     Dates: start: 20121003
  19. DESYREL [Concomitant]
     Route: 048
  20. MAGNESIUM [Concomitant]
     Dosage: ONCE A DAY AS NEEDED
     Route: 048

REACTIONS (3)
  - Dyspnoea [Recovered/Resolved]
  - Feeling hot [Recovered/Resolved]
  - Pruritus [Recovered/Resolved]
